FAERS Safety Report 4335396-2 (Version None)
Quarter: 2004Q2

REPORT INFORMATION
  Report Type: 
  Country: None (occurrence: None)
  Receive Date: 20040408
  Receipt Date: 20040408
  Transmission Date: 20050107
  Serious: Yes (Hospitalization)
  Sender: FDA-Public Use
  Company Number: None

PATIENT
  Sex: Male

DRUGS (20)
  1. ZOMETA [Suspect]
     Indication: RENAL CELL CARCINOMA STAGE UNSPECIFIED
     Dosage: 4 MG IV Q 4 WKS
     Route: 042
     Dates: start: 20040329
  2. INTERLEUKIN-2 22 MU VIAL CHIRON [Suspect]
     Indication: RENAL CELL CARCINOMA STAGE UNSPECIFIED
     Dosage: 7 MU/M2 DAYS 1-5, 8-12 + 15-20
     Dates: start: 20040329, end: 20040402
  3. INTERLEUKIN-2 22 MU VIAL CHIRON [Suspect]
     Indication: RENAL CELL CARCINOMA STAGE UNSPECIFIED
     Dosage: 7 MU/M2 DAYS 1-5, 8-12 + 15-20
     Dates: start: 20040405
  4. HYDROCODONE BITARTRATE AND ACETAMINOPHEN [Concomitant]
  5. GLYBURIDE [Concomitant]
  6. METAFORMIN [Concomitant]
  7. ZOCOR [Concomitant]
  8. SYNTHROID [Concomitant]
  9. ACTOS [Concomitant]
  10. TRIAMTEREN/HCTZ [Concomitant]
  11. BISACODYL [Concomitant]
  12. ASPIRIN [Concomitant]
  13. TYLENOL [Concomitant]
  14. TYLENOL (CAPLET) [Concomitant]
  15. LORAZEPAM [Concomitant]
  16. DIPHENHYDRAMINE HCL [Concomitant]
  17. COMPAZINE [Concomitant]
  18. CIPRO [Concomitant]
  19. ZOFRAN [Concomitant]
  20. RECEPHIN [Concomitant]

REACTIONS (3)
  - BLOOD CREATINE INCREASED [None]
  - BLOOD GLUCOSE DECREASED [None]
  - BLOOD SODIUM DECREASED [None]
